FAERS Safety Report 25433153 (Version 1)
Quarter: 2025Q2

REPORT INFORMATION
  Report Type: Spontaneous
  Country: US (occurrence: US)
  Receive Date: 20250613
  Receipt Date: 20250613
  Transmission Date: 20250716
  Serious: Yes (Hospitalization, Other)
  Sender: Unknown Manufacturer
  Company Number: US-862174955-ML2025-02827

PATIENT
  Age: 14 Month
  Sex: Female

DRUGS (1)
  1. AMOXICILLIN [Suspect]
     Active Substance: AMOXICILLIN
     Indication: Antibiotic prophylaxis
     Dosage: 90MG/KG DAILY

REACTIONS (3)
  - Meningitis streptococcal [Recovered/Resolved]
  - Streptococcal bacteraemia [Recovered/Resolved]
  - Drug ineffective [Unknown]
